FAERS Safety Report 24421897 (Version 2)
Quarter: 2024Q4

REPORT INFORMATION
  Report Type: Spontaneous
  Country: CH (occurrence: CH)
  Receive Date: 20241010
  Receipt Date: 20241017
  Transmission Date: 20250115
  Serious: Yes (Hospitalization)
  Sender: MYLAN
  Company Number: CH-MYLANLABS-2024M1090093

PATIENT
  Age: 81 Year
  Sex: Female

DRUGS (7)
  1. XANAX [Suspect]
     Active Substance: ALPRAZOLAM
     Indication: Drug dependence
     Dosage: UNK, (OCCASIONALLY TOOK XANAX 0.5 MG 0-0-1-0 AND UP TO 4 PCS)
     Route: 065
     Dates: start: 202312, end: 20240925
  2. XANAX [Suspect]
     Active Substance: ALPRAZOLAM
     Dosage: 1 MILLIGRAM, QD (2-0-0-0)
     Route: 065
     Dates: start: 202312
  3. XANAX [Suspect]
     Active Substance: ALPRAZOLAM
     Dosage: 0.5 MILLIGRAM, QD (2-0-0-0)
     Route: 065
     Dates: start: 20231230
  4. XANAX [Suspect]
     Active Substance: ALPRAZOLAM
     Dosage: 0.5 MILLIGRAM, QD (RESERVE 1-2 PCS/24H)
     Route: 065
     Dates: start: 20240731
  5. XANAX [Suspect]
     Active Substance: ALPRAZOLAM
     Dosage: 0.5 MILLIGRAM, QD (0-0-1-0 FIXED)
     Route: 065
     Dates: start: 20240807, end: 20240911
  6. XANAX [Suspect]
     Active Substance: ALPRAZOLAM
     Indication: Drug dependence
     Dosage: UNK,(OCCASIONALLY TOOK XANAX RET. 0.5 MG 2-0-0-0)
     Route: 065
     Dates: start: 202312, end: 20240925
  7. XANAX [Suspect]
     Active Substance: ALPRAZOLAM
     Dosage: 0.5 MILLIGRAM, BID (1-0-1-0)
     Route: 065
     Dates: start: 20240731, end: 20240911

REACTIONS (16)
  - Malaise [Unknown]
  - Muscle tightness [Unknown]
  - Gastroenteritis [Unknown]
  - Dizziness [Unknown]
  - Tremor [Unknown]
  - Cystitis [Unknown]
  - Arthralgia [Unknown]
  - Oedema [Unknown]
  - Neck pain [Unknown]
  - Tension [Unknown]
  - Feeling abnormal [Unknown]
  - Fatigue [Unknown]
  - Pain [Unknown]
  - Restlessness [Unknown]
  - Off label use [Unknown]
  - Drug effect less than expected [Unknown]

NARRATIVE: CASE EVENT DATE: 20231201
